FAERS Safety Report 16871347 (Version 1)
Quarter: 2019Q4

REPORT INFORMATION
  Report Type: Spontaneous
  Country: US (occurrence: US)
  Receive Date: 20191001
  Receipt Date: 20191001
  Transmission Date: 20200122
  Serious: No
  Sender: FDA-Public Use
  Company Number: US-CIPLA LTD.-2019US00002

PATIENT

DRUGS (4)
  1. PRAVASTATIN. [Concomitant]
     Active Substance: PRAVASTATIN
     Indication: HYPERTENSION
     Dosage: 10 MILLIGRAM (1 TABLET), DAILY
     Route: 065
  2. FLUTAMIDE. [Suspect]
     Active Substance: FLUTAMIDE
     Dosage: 6 DF, PER DAY
     Route: 048
  3. AMLODIPINE [Concomitant]
     Active Substance: AMLODIPINE BESYLATE
     Indication: HYPERTENSION
     Dosage: 10 MG/40 MG (1 TABLET), DAILY
     Route: 065
  4. FLUTAMIDE. [Suspect]
     Active Substance: FLUTAMIDE
     Indication: PRODUCT USED FOR UNKNOWN INDICATION
     Dosage: 2 DF, TID
     Route: 048
     Dates: start: 201808

REACTIONS (3)
  - Nipple pain [Unknown]
  - Chromaturia [Unknown]
  - Product contamination physical [Unknown]

NARRATIVE: CASE EVENT DATE: 201809
